FAERS Safety Report 7893620-3 (Version None)
Quarter: 2011Q4

REPORT INFORMATION
  Report Type: 
  Country: None (occurrence: None)
  Receive Date: 20111104
  Receipt Date: 20111026
  Transmission Date: 20120403
  Serious: Yes (Other)
  Sender: FDA-Public Use
  Company Number: GB-GLAXOSMITHKLINE-B0708849A

PATIENT
  Sex: Female
  Weight: 47.6 kg

DRUGS (2)
  1. TRASTUZUMAB [Suspect]
     Indication: BREAST CANCER
     Dosage: 6MGK EVERY 3 WEEKS
     Route: 042
     Dates: start: 20090420
  2. LAPATINIB [Suspect]
     Indication: BREAST CANCER
     Dosage: 100MG PER DAY
     Route: 048
     Dates: start: 20090420

REACTIONS (1)
  - CARDIAC FAILURE CONGESTIVE [None]
